FAERS Safety Report 12797186 (Version 1)
Quarter: 2016Q3

REPORT INFORMATION
  Report Type: Report from Study
  Country: DK (occurrence: DK)
  Receive Date: 20160930
  Receipt Date: 20160930
  Transmission Date: 20161109
  Serious: Yes (Other)
  Sender: FDA-Public Use
  Company Number: DK-AUROBINDO-AUR-APL-2016-12012

PATIENT
  Age: 63 Year
  Sex: Male

DRUGS (12)
  1. ESBRIET [Suspect]
     Active Substance: PIRFENIDONE
     Dosage: 2403 MG, DAILY
     Route: 065
     Dates: start: 20150601
  2. ESBRIET [Suspect]
     Active Substance: PIRFENIDONE
     Dosage: 1602 MG, DAILY
     Route: 065
     Dates: start: 20140805, end: 20141101
  3. ESBRIET [Suspect]
     Active Substance: PIRFENIDONE
     Dosage: UNK, DAILY
     Route: 065
     Dates: start: 20150819
  4. ESBRIET [Suspect]
     Active Substance: PIRFENIDONE
     Indication: IDIOPATHIC PULMONARY FIBROSIS
     Dosage: 1602 MG, DAILY
     Route: 065
     Dates: start: 20150805
  5. ESBRIET [Suspect]
     Active Substance: PIRFENIDONE
     Dosage: 801 MG, DAILY
     Route: 065
     Dates: start: 20150901
  6. ESBRIET [Suspect]
     Active Substance: PIRFENIDONE
     Dosage: 2403 MG, DAILY
     Route: 065
     Dates: start: 20141206
  7. HJERTEMAGNYL                       /00002701/ [Concomitant]
     Active Substance: ASPIRIN
     Indication: THROMBOSIS PROPHYLAXIS
     Dosage: 75 MG, UNK
     Route: 065
  8. SIMVASTATIN. [Concomitant]
     Active Substance: SIMVASTATIN
     Indication: HYPERCHOLESTEROLAEMIA
     Dosage: 40 MG, UNK
     Route: 065
  9. ESBRIET [Suspect]
     Active Substance: PIRFENIDONE
     Dosage: 2403 MG, DAILY
     Route: 065
     Dates: start: 20140417
  10. PANTOPRAZOLE 40MG [Suspect]
     Active Substance: PANTOPRAZOLE SODIUM
     Indication: IDIOPATHIC PULMONARY FIBROSIS
     Dosage: 40 MG, UNK
     Route: 065
     Dates: start: 20140409
  11. ESBRIET [Suspect]
     Active Substance: PIRFENIDONE
     Dosage: 1602 MG, DAILY
     Route: 065
     Dates: start: 20141129
  12. ESBRIET [Suspect]
     Active Substance: PIRFENIDONE
     Dosage: 801 MG, DAILY
     Route: 065
     Dates: start: 20141122

REACTIONS (5)
  - Eczema [Not Recovered/Not Resolved]
  - Off label use [Not Recovered/Not Resolved]
  - Weight decreased [Recovered/Resolved]
  - Nausea [Recovered/Resolved]
  - Food aversion [Recovered/Resolved]

NARRATIVE: CASE EVENT DATE: 20140518
